FAERS Safety Report 19918095 (Version 1)
Quarter: 2021Q4

REPORT INFORMATION
  Report Type: Spontaneous
  Country: US (occurrence: US)
  Receive Date: 20211005
  Receipt Date: 20211005
  Transmission Date: 20220304
  Serious: Yes (Life-Threatening)
  Sender: FDA-Public Use
  Company Number: None

PATIENT
  Age: 44 Year
  Sex: Male
  Weight: 96.75 kg

DRUGS (1)
  1. LOTRIMIN ANTIFUNGAL (MICONAZOLE NITRATE) [Suspect]
     Active Substance: MICONAZOLE NITRATE
     Indication: Tinea cruris
     Route: 061
     Dates: start: 20210922, end: 20211001

REACTIONS (4)
  - Headache [None]
  - Nausea [None]
  - Tinea cruris [None]
  - Condition aggravated [None]

NARRATIVE: CASE EVENT DATE: 20210925
